FAERS Safety Report 8491145-8 (Version None)
Quarter: 2012Q2

REPORT INFORMATION
  Report Type: 
  Country: None (occurrence: None)
  Receive Date: 20120402
  Receipt Date: 20120126
  Transmission Date: 20120825
  Serious: Yes (Other)
  Sender: FDA-Public Use
  Company Number: 2012P1003322

PATIENT
  Age: 65 Year
  Sex: Female
  Weight: 58.9676 kg

DRUGS (5)
  1. PREDNISONE EYE DROPS [Concomitant]
  2. LOSARTAN POTASSIUM [Suspect]
     Indication: HYPERTENSION
     Dosage: 25 MG;QD 12.5 MG;QD
     Dates: start: 20120121
  3. LOSARTAN POTASSIUM [Suspect]
     Indication: PALPITATIONS
     Dosage: 25 MG;QD 12.5 MG;QD
     Dates: start: 20120121
  4. LOSARTAN POTASSIUM [Suspect]
     Indication: HYPERTENSION
     Dosage: 25 MG;QD 12.5 MG;QD
     Dates: start: 20120112, end: 20120120
  5. LOSARTAN POTASSIUM [Suspect]
     Indication: PALPITATIONS
     Dosage: 25 MG;QD 12.5 MG;QD
     Dates: start: 20120112, end: 20120120

REACTIONS (22)
  - DYSPHONIA [None]
  - SYNCOPE [None]
  - CONSTIPATION [None]
  - HEADACHE [None]
  - DIZZINESS [None]
  - DYSPEPSIA [None]
  - ABDOMINAL PAIN UPPER [None]
  - MUSCLE SPASMS [None]
  - DRY MOUTH [None]
  - INFLUENZA [None]
  - AGEUSIA [None]
  - CANDIDIASIS [None]
  - MICTURITION DISORDER [None]
  - COUGH [None]
  - VISION BLURRED [None]
  - RHINORRHOEA [None]
  - PARAESTHESIA ORAL [None]
  - FLUSHING [None]
  - NAUSEA [None]
  - NERVOUSNESS [None]
  - INSOMNIA [None]
  - DYSPHAGIA [None]
